FAERS Safety Report 24156023 (Version 1)
Quarter: 2024Q3

REPORT INFORMATION
  Report Type: Spontaneous
  Country: US (occurrence: None)
  Receive Date: 20240731
  Receipt Date: 20240731
  Transmission Date: 20241016
  Serious: No
  Sender: ASTRAZENECA
  Company Number: 2024A173777

PATIENT
  Sex: Female

DRUGS (2)
  1. SYMBICORT [Suspect]
     Active Substance: BUDESONIDE\FORMOTEROL FUMARATE DIHYDRATE
     Dosage: UNKNOWN
     Route: 055
  2. BUDESONIDE\FORMOTEROL [Suspect]
     Active Substance: BUDESONIDE\FORMOTEROL
     Dosage: UNKNOWN
     Route: 055

REACTIONS (6)
  - Influenza [Unknown]
  - Product dose omission issue [Unknown]
  - Device use issue [Unknown]
  - Intercepted medication error [Unknown]
  - Product dispensing error [Unknown]
  - Device delivery system issue [Unknown]
